FAERS Safety Report 7033174-7 (Version None)
Quarter: 2010Q4

REPORT INFORMATION
  Report Type: 
  Country: None (occurrence: None)
  Receive Date: 20101007
  Receipt Date: 20100924
  Transmission Date: 20110411
  Serious: Yes (Hospitalization, Other)
  Sender: FDA-Public Use
  Company Number: US-SANOFI-AVENTIS-A03200701987

PATIENT
  Sex: Female
  Weight: 81.64 kg

DRUGS (12)
  1. PLAVIX [Suspect]
     Indication: CARDIOVASCULAR DISORDER
     Dosage: UNIT DOSE: 75 MG
     Route: 048
     Dates: start: 19980101, end: 20051101
  2. PLAVIX [Suspect]
     Dosage: UNIT DOSE: 75 MG
     Route: 048
     Dates: start: 19980101, end: 20051101
  3. PLAVIX [Suspect]
     Route: 048
     Dates: start: 20051112
  4. PLAVIX [Suspect]
     Route: 048
     Dates: start: 20051112
  5. PAXIL [Concomitant]
  6. NORVASC [Concomitant]
  7. PREVACID [Concomitant]
  8. TRAZODONE HCL [Concomitant]
  9. ATACAND HCT [Concomitant]
     Dosage: 32/254 ONE
  10. LODINE XL [Concomitant]
     Indication: PAIN
  11. NORMODYNE [Concomitant]
  12. EXCEDRIN (MIGRAINE) [Concomitant]
     Indication: HEADACHE

REACTIONS (21)
  - ABDOMINAL PAIN UPPER [None]
  - ANAEMIA [None]
  - CARPAL TUNNEL SYNDROME [None]
  - CERVICOBRACHIAL SYNDROME [None]
  - CONDITION AGGRAVATED [None]
  - CONTUSION [None]
  - DIZZINESS [None]
  - DYSPNOEA [None]
  - FAECES DISCOLOURED [None]
  - FALL [None]
  - FATIGUE [None]
  - GASTRIC ULCER HAEMORRHAGE [None]
  - HAEMATOCRIT DECREASED [None]
  - HYPOAESTHESIA [None]
  - LABORATORY TEST ABNORMAL [None]
  - MULTIPLE SCLEROSIS [None]
  - NAUSEA [None]
  - PARAESTHESIA [None]
  - SYNCOPE [None]
  - UPPER GASTROINTESTINAL HAEMORRHAGE [None]
  - VOMITING [None]
